FAERS Safety Report 7636052-5 (Version None)
Quarter: 2011Q3

REPORT INFORMATION
  Report Type: 
  Country: None (occurrence: None)
  Receive Date: 20110726
  Receipt Date: 20110721
  Transmission Date: 20111222
  Serious: Yes (Other)
  Sender: FDA-Public Use
  Company Number: SE-PFIZER INC-2011165627

PATIENT
  Age: 28 Year
  Sex: Male

DRUGS (4)
  1. CONCERTA [Concomitant]
     Dosage: TWICE DAILY
  2. ZOPICLONE [Interacting]
     Dosage: UNK
  3. LYRICA [Suspect]
     Dosage: 75 MG DAILY
     Dates: start: 20110720, end: 20110721
  4. BUPROPION HYDROCHLORIDE [Interacting]
     Dosage: UNK

REACTIONS (8)
  - APHASIA [None]
  - DYSARTHRIA [None]
  - CONFUSIONAL STATE [None]
  - DIPLOPIA [None]
  - DRUG INTERACTION [None]
  - BALANCE DISORDER [None]
  - FEELING DRUNK [None]
  - HALLUCINATION, AUDITORY [None]
